FAERS Safety Report 19258909 (Version 1)
Quarter: 2021Q2

REPORT INFORMATION
  Report Type: Spontaneous
  Country: IT (occurrence: IT)
  Receive Date: 20210514
  Receipt Date: 20210514
  Transmission Date: 20210717
  Serious: Yes (Other)
  Sender: FDA-Public Use
  Company Number: IT-LUPIN PHARMACEUTICALS INC.-2021-06798

PATIENT
  Age: 41 Year
  Sex: Female

DRUGS (2)
  1. ALBUTEROL SULFATE. [Suspect]
     Active Substance: ALBUTEROL SULFATE
     Indication: CONGENITAL MYASTHENIC SYNDROME
     Dosage: 4 MILLIGRAM, TID
     Route: 065
  2. PYRIDOSTIGMINE [Suspect]
     Active Substance: PYRIDOSTIGMINE
     Indication: CONGENITAL MYASTHENIC SYNDROME
     Dosage: UNK
     Route: 065

REACTIONS (4)
  - Off label use [Unknown]
  - Condition aggravated [Recovering/Resolving]
  - Congenital myasthenic syndrome [Recovering/Resolving]
  - Drug effective for unapproved indication [Unknown]
